FAERS Safety Report 6790394-4 (Version None)
Quarter: 2010Q2

REPORT INFORMATION
  Report Type: 
  Country: None (occurrence: None)
  Receive Date: 20100624
  Receipt Date: 20100614
  Transmission Date: 20101027
  Serious: Yes (Hospitalization, Other)
  Sender: FDA-Public Use
  Company Number: PHHY2010US34979

PATIENT
  Sex: Male

DRUGS (19)
  1. DIOVAN [Suspect]
     Dosage: UNK
  2. NORVASC [Suspect]
  3. ZANTAC [Suspect]
  4. COREG [Suspect]
  5. DYAZIDE [Suspect]
  6. BENAZEPRIL HYDROCHLORIDE [Suspect]
  7. ZOCOR [Suspect]
  8. AMBIEN [Suspect]
  9. CLONIDINE [Suspect]
  10. FLUCONAZOLE [Suspect]
  11. POTASSIUM CHLORIDE [Suspect]
  12. HYDRALAZINE HCL [Suspect]
  13. FLOMAX [Suspect]
  14. PERCOCET [Concomitant]
     Dosage: PRN
  15. MIRALAX [Concomitant]
  16. HYDRENE [Concomitant]
  17. ISOSORBIDE [Concomitant]
  18. STOOL SOFTENER [Concomitant]
  19. DIFLUCAN [Concomitant]

REACTIONS (6)
  - GASTROINTESTINAL MOTILITY DISORDER [None]
  - INTESTINAL RESECTION [None]
  - NEPHRECTOMY [None]
  - PERIRENAL HAEMATOMA [None]
  - POST PROCEDURAL CONSTIPATION [None]
  - RENAL CANCER [None]
